FAERS Safety Report 15556140 (Version 3)
Quarter: 2018Q4

REPORT INFORMATION
  Report Type: Spontaneous
  Country: US (occurrence: US)
  Receive Date: 20181026
  Receipt Date: 20181212
  Transmission Date: 20190205
  Serious: No
  Sender: FDA-Public Use
  Company Number: US-CELGENEUS-USA-20181007945

PATIENT
  Sex: Female

DRUGS (3)
  1. REVLIMID [Suspect]
     Active Substance: LENALIDOMIDE
     Indication: PLASMA CELL MYELOMA
     Dosage: 25 MILLIGRAM
     Route: 048
     Dates: start: 201701
  2. REVLIMID [Suspect]
     Active Substance: LENALIDOMIDE
     Dosage: 10 MILLIGRAM
     Route: 048
     Dates: start: 20180122
  3. REVLIMID [Suspect]
     Active Substance: LENALIDOMIDE
     Indication: FOOD ALLERGY
     Dosage: 10 MILLIGRAM
     Route: 048
     Dates: start: 201711

REACTIONS (3)
  - Skin disorder [Unknown]
  - Rash [Unknown]
  - Pruritus [Unknown]
